FAERS Safety Report 7435454-X (Version None)
Quarter: 2011Q2

REPORT INFORMATION
  Report Type: 
  Country: None (occurrence: None)
  Receive Date: 20110425
  Receipt Date: 20110412
  Transmission Date: 20111010
  Serious: Yes (Other)
  Sender: FDA-Public Use
  Company Number: PHHY2011US10883

PATIENT
  Sex: Male
  Weight: 70 kg

DRUGS (5)
  1. PHENERGAN HCL [Concomitant]
     Indication: NAUSEA
     Route: 048
  2. AFINITOR [Suspect]
     Dosage: 5 MG, QD
     Route: 048
     Dates: start: 20110131
  3. OXYCODONE [Concomitant]
     Indication: PAIN
     Route: 048
  4. SANDOSTATIN LAR [Concomitant]
     Dosage: 30 MG, EVERY 3 WEEKS
     Route: 030
     Dates: start: 20110106
  5. AFINITOR [Suspect]
     Indication: NEUROENDOCRINE TUMOUR
     Dosage: 10 MG, QD
     Route: 048
     Dates: start: 20110106

REACTIONS (3)
  - CONSTIPATION [None]
  - HEPATOMEGALY [None]
  - LIVER FUNCTION TEST ABNORMAL [None]
